FAERS Safety Report 4597030-6 (Version None)
Quarter: 2005Q1

REPORT INFORMATION
  Report Type: 
  Country: None (occurrence: None)
  Receive Date: 20050301
  Receipt Date: 20050224
  Transmission Date: 20050727
  Serious: Yes (Hospitalization)
  Sender: FDA-Public Use
  Company Number: 05-02-0284

PATIENT
  Age: 42 Year
  Sex: Male

DRUGS (2)
  1. CLOZAPINE [Suspect]
     Indication: SCHIZOPHRENIA
     Dosage: 400MG QD ORAL
     Route: 048
     Dates: start: 19980401, end: 20050201
  2. TYLENOL (CAPLET) [Suspect]

REACTIONS (2)
  - DRUG TOXICITY [None]
  - LIVER TRANSPLANT [None]
